FAERS Safety Report 13343020 (Version 1)
Quarter: 2017Q1

REPORT INFORMATION
  Report Type: Spontaneous
  Country: GT (occurrence: GT)
  Receive Date: 20170316
  Receipt Date: 20170316
  Transmission Date: 20170428
  Serious: Yes (Hospitalization, Other)
  Sender: FDA-Public Use
  Company Number: GT-BAYER-2017-050288

PATIENT
  Age: 24 Year
  Sex: Female

DRUGS (2)
  1. VISANNE [Suspect]
     Active Substance: DIENOGEST
     Indication: ENDOMETRIOSIS
     Dosage: UNK
     Route: 048
     Dates: start: 20161205
  2. YASMIN [Suspect]
     Active Substance: DROSPIRENONE\ETHINYL ESTRADIOL
     Indication: POLYCYSTIC OVARIES
     Dosage: UNK
     Route: 048

REACTIONS (2)
  - Product use issue [None]
  - Seizure [None]

NARRATIVE: CASE EVENT DATE: 201703
